FAERS Safety Report 7928992-4 (Version None)
Quarter: 2011Q4

REPORT INFORMATION
  Report Type: 
  Country: None (occurrence: None)
  Receive Date: 20111118
  Receipt Date: 20110120
  Transmission Date: 20120403
  Serious: No
  Sender: FDA-Public Use
  Company Number: US-AMGEN-TCS437115

PATIENT
  Age: 78 Year
  Sex: Male

DRUGS (1)
  1. ENBREL [Suspect]
     Indication: PSORIASIS
     Dosage: 50 MG, 2 TIMES/WK
     Route: 058
     Dates: start: 20100811, end: 20100101

REACTIONS (20)
  - SKIN FISSURES [None]
  - POLLAKIURIA [None]
  - MEMORY IMPAIRMENT [None]
  - IMPAIRED HEALING [None]
  - SKIN INFECTION [None]
  - OEDEMA PERIPHERAL [None]
  - INJECTION SITE ERYTHEMA [None]
  - CHILLS [None]
  - INJECTION SITE SWELLING [None]
  - PRURITUS GENERALISED [None]
  - FEELING ABNORMAL [None]
  - HAIR TEXTURE ABNORMAL [None]
  - SKIN DISORDER [None]
  - ALOPECIA [None]
  - RECTAL DISCHARGE [None]
  - ULCER [None]
  - DRY SKIN [None]
  - HUNGER [None]
  - RASH PAPULAR [None]
  - RASH [None]
